FAERS Safety Report 15255624 (Version 1)
Quarter: 2018Q3

REPORT INFORMATION
  Report Type: Spontaneous
  Country: US (occurrence: US)
  Receive Date: 20180717
  Receipt Date: 20180717
  Transmission Date: 20181010
  Serious: No
  Sender: FDA-Public Use
  Company Number: None

PATIENT
  Age: 61 Year
  Sex: Female

DRUGS (1)
  1. REBIF REBIDOSE [Suspect]
     Active Substance: INTERFERON BETA-1A
     Dates: start: 20180531, end: 20180606

REACTIONS (2)
  - Injection site erythema [None]
  - Multiple sclerosis relapse [None]

NARRATIVE: CASE EVENT DATE: 20180611
